FAERS Safety Report 7516549-9 (Version None)
Quarter: 2011Q2

REPORT INFORMATION
  Report Type: 
  Country: None (occurrence: None)
  Receive Date: 20110601
  Receipt Date: 20110524
  Transmission Date: 20111010
  Serious: Yes (Hospitalization)
  Sender: FDA-Public Use
  Company Number: B0721450A

PATIENT
  Sex: Female

DRUGS (9)
  1. OXAZEPAM [Concomitant]
     Dosage: 10MG FOUR TIMES PER DAY
  2. MIRTAZAPINE [Concomitant]
     Dosage: 30MG PER DAY
  3. OMEPRAZOLE [Concomitant]
     Dosage: 20MG PER DAY
  4. POTASSIUM CHLORIDE [Concomitant]
  5. FERROUS SULFATE TAB [Concomitant]
     Dosage: 80MG PER DAY
  6. LAMICTAL [Suspect]
     Dosage: 25MG SEE DOSAGE TEXT
     Route: 048
     Dates: start: 20110301, end: 20110328
  7. ACETAMINOPHEN [Concomitant]
     Dosage: 1G THREE TIMES PER DAY
  8. ZOLPIDEM [Concomitant]
     Dosage: 10MG PER DAY
  9. CLONAZEPAM [Concomitant]
     Dosage: 5DROP AS REQUIRED

REACTIONS (3)
  - AGGRESSION [None]
  - ABNORMAL BEHAVIOUR [None]
  - CONDITION AGGRAVATED [None]
